FAERS Safety Report 19060602 (Version 6)
Quarter: 2021Q3

REPORT INFORMATION
  Report Type: Report from Study
  Country: JP (occurrence: JP)
  Receive Date: 20210326
  Receipt Date: 20210914
  Transmission Date: 20211014
  Serious: Yes (Other)
  Sender: FDA-Public Use
  Company Number: JP-CELLTRION INC.-2021JP003900

PATIENT

DRUGS (42)
  1. CT?P6 [Suspect]
     Active Substance: INVESTIGATIONAL BIOSIMILARS
     Dosage: 330 MG, QD
     Route: 041
     Dates: start: 20200731, end: 20200731
  2. CT?P6 [Suspect]
     Active Substance: INVESTIGATIONAL BIOSIMILARS
     Dosage: 330 MG, QD
     Route: 041
     Dates: start: 20200828, end: 20200828
  3. CT?P6 [Suspect]
     Active Substance: INVESTIGATIONAL BIOSIMILARS
     Dosage: 330 MG, QD
     Route: 041
     Dates: start: 20200905, end: 20200905
  4. OXALIPLATIN. [Suspect]
     Active Substance: OXALIPLATIN
     Dosage: 200 MG, QD
     Route: 041
     Dates: start: 20200313, end: 20200313
  5. XELODA [Suspect]
     Active Substance: CAPECITABINE
     Dosage: 3000 MG, QD
     Route: 048
     Dates: start: 20200221
  6. TEGAFUR/GIMERACIL/OTERACIL POTASSIUM COMBINED DRUG [Suspect]
     Active Substance: GIMERACIL\OTERACIL\TEGAFUR
     Indication: HER2 POSITIVE GASTRIC CANCER
     Dosage: 120 MG, QD
     Route: 048
     Dates: start: 20200424
  7. TEGAFUR/GIMERACIL/OTERACIL POTASSIUM COMBINED DRUG [Suspect]
     Active Substance: GIMERACIL\OTERACIL\TEGAFUR
     Dosage: 80 MG, QD
     Route: 048
     Dates: start: 20201023
  8. DECADRON TABLET [Concomitant]
     Indication: PROPHYLAXIS OF NAUSEA AND VOMITING
     Dosage: UNK
     Dates: start: 20200110
  9. CT?P6 [Suspect]
     Active Substance: INVESTIGATIONAL BIOSIMILARS
     Indication: HER2 POSITIVE GASTRIC CANCER
     Dosage: 500 MILLIGRAM, QD
     Route: 041
     Dates: start: 20191213, end: 20191213
  10. CT?P6 [Suspect]
     Active Substance: INVESTIGATIONAL BIOSIMILARS
     Dosage: 360 MG, QD
     Route: 041
     Dates: start: 20200522, end: 20200522
  11. CT?P6 [Suspect]
     Active Substance: INVESTIGATIONAL BIOSIMILARS
     Dosage: 330 MG, QD
     Route: 041
     Dates: start: 20201120, end: 20201120
  12. OXALIPLATIN. [Suspect]
     Active Substance: OXALIPLATIN
     Dosage: 170 MG, QD
     Route: 041
     Dates: start: 20200612, end: 20200612
  13. OXALIPLATIN. [Suspect]
     Active Substance: OXALIPLATIN
     Dosage: 170 MG, QD
     Route: 041
     Dates: start: 20200703, end: 20200703
  14. TEGAFUR/GIMERACIL/OTERACIL POTASSIUM COMBINED DRUG [Suspect]
     Active Substance: GIMERACIL\OTERACIL\TEGAFUR
     Dosage: 80 MG, QD
     Route: 048
     Dates: start: 20200731
  15. CT?P6 [Suspect]
     Active Substance: INVESTIGATIONAL BIOSIMILARS
     Dosage: 380 MG, QD
     Route: 041
     Dates: start: 20200221, end: 20200221
  16. CT?P6 [Suspect]
     Active Substance: INVESTIGATIONAL BIOSIMILARS
     Dosage: 360 MG, QD
     Route: 041
     Dates: start: 20200612, end: 20200612
  17. OXALIPLATIN. [Suspect]
     Active Substance: OXALIPLATIN
     Dosage: 170 MG, QD
     Route: 041
     Dates: start: 20200522, end: 20200522
  18. TEGAFUR/GIMERACIL/OTERACIL POTASSIUM COMBINED DRUG [Suspect]
     Active Substance: GIMERACIL\OTERACIL\TEGAFUR
     Dosage: 80 MG, QD
     Route: 048
     Dates: start: 20200703
  19. TEGAFUR/GIMERACIL/OTERACIL POTASSIUM COMBINED DRUG [Suspect]
     Active Substance: GIMERACIL\OTERACIL\TEGAFUR
     Dosage: 80 MG, QD
     Route: 048
     Dates: start: 20200925
  20. CT?P6 [Suspect]
     Active Substance: INVESTIGATIONAL BIOSIMILARS
     Dosage: 380 MG, QD
     Route: 041
     Dates: start: 20200313, end: 20200313
  21. OXALIPLATIN. [Suspect]
     Active Substance: OXALIPLATIN
     Dosage: 160 MG, QD
     Route: 041
     Dates: start: 20200731, end: 20200731
  22. TEGAFUR/GIMERACIL/OTERACIL POTASSIUM COMBINED DRUG [Suspect]
     Active Substance: GIMERACIL\OTERACIL\TEGAFUR
     Dosage: 100 MG, QD
     Route: 048
     Dates: start: 20200522
  23. TEGAFUR/GIMERACIL/OTERACIL POTASSIUM COMBINED DRUG [Suspect]
     Active Substance: GIMERACIL\OTERACIL\TEGAFUR
     Dosage: 100 MG, QD
     Route: 048
     Dates: start: 20200612
  24. TEGAFUR/GIMERACIL/OTERACIL POTASSIUM COMBINED DRUG [Suspect]
     Active Substance: GIMERACIL\OTERACIL\TEGAFUR
     Dosage: 80 MG, QD
     Route: 048
     Dates: start: 20201120
  25. TEGAFUR/GIMERACIL/OTERACIL POTASSIUM COMBINED DRUG [Suspect]
     Active Substance: GIMERACIL\OTERACIL\TEGAFUR
     Dosage: 80 MG, QD
     Route: 048
     Dates: start: 20201218
  26. CT?P6 [Suspect]
     Active Substance: INVESTIGATIONAL BIOSIMILARS
     Dosage: 360 MG, QD
     Route: 041
     Dates: start: 20200403, end: 20200403
  27. CT?P6 [Suspect]
     Active Substance: INVESTIGATIONAL BIOSIMILARS
     Dosage: 360 MG, QD
     Route: 041
     Dates: start: 20200424, end: 20200424
  28. CT?P6 [Suspect]
     Active Substance: INVESTIGATIONAL BIOSIMILARS
     Dosage: 360 MG, QD
     Route: 041
     Dates: start: 20200703, end: 20200703
  29. CT?P6 [Suspect]
     Active Substance: INVESTIGATIONAL BIOSIMILARS
     Dosage: 330 MG, QD
     Route: 041
     Dates: start: 20201023, end: 20201023
  30. CT?P6 [Suspect]
     Active Substance: INVESTIGATIONAL BIOSIMILARS
     Dosage: 330 MG, QD
     Route: 041
     Dates: start: 20201218, end: 20201218
  31. OXALIPLATIN. [Suspect]
     Active Substance: OXALIPLATIN
     Dosage: 160 MG, QD
     Route: 041
     Dates: start: 20201023, end: 20201023
  32. XELODA [Suspect]
     Active Substance: CAPECITABINE
     Indication: HER2 POSITIVE GASTRIC CANCER
     Dosage: 3600 MG, QD
     Route: 048
     Dates: start: 20191213
  33. XELODA [Suspect]
     Active Substance: CAPECITABINE
     Dosage: 3000 MG, QD
     Route: 048
     Dates: start: 20200313
  34. CT?P6 [Suspect]
     Active Substance: INVESTIGATIONAL BIOSIMILARS
     Dosage: 380MG, QD
     Route: 041
     Dates: start: 20200110, end: 20200110
  35. OXALIPLATIN. [Suspect]
     Active Substance: OXALIPLATIN
     Indication: HER2 POSITIVE GASTRIC CANCER
     Dosage: 200 MG, QD
     Route: 041
     Dates: start: 20191213, end: 20191213
  36. OXALIPLATIN. [Suspect]
     Active Substance: OXALIPLATIN
     Dosage: 200 MG, QD
     Route: 041
     Dates: start: 20200110, end: 20200110
  37. OXALIPLATIN. [Suspect]
     Active Substance: OXALIPLATIN
     Dosage: 200 MG, QD
     Route: 041
     Dates: start: 20200221, end: 20200221
  38. OXALIPLATIN. [Suspect]
     Active Substance: OXALIPLATIN
     Dosage: 170 MG, QD
     Route: 041
     Dates: start: 20200424, end: 20200424
  39. DECADRON TABLET [Concomitant]
     Indication: CHEMOTHERAPY
  40. CT?P6 [Suspect]
     Active Substance: INVESTIGATIONAL BIOSIMILARS
     Dosage: 380 MG, QD
     Route: 041
     Dates: start: 20200131, end: 20200131
  41. OXALIPLATIN. [Suspect]
     Active Substance: OXALIPLATIN
     Dosage: 160 MG, QD
     Route: 041
     Dates: start: 20201218, end: 20201218
  42. XELODA [Suspect]
     Active Substance: CAPECITABINE
     Dosage: 3600 MG, QD
     Route: 048
     Dates: start: 20200110

REACTIONS (12)
  - Pollakiuria [Not Recovered/Not Resolved]
  - Stomatitis [Not Recovered/Not Resolved]
  - Diarrhoea [Recovering/Resolving]
  - Asteatosis [Not Recovered/Not Resolved]
  - Taste disorder [Not Recovered/Not Resolved]
  - Neuropathy peripheral [Not Recovered/Not Resolved]
  - Lung disorder [Unknown]
  - Palmar-plantar erythrodysaesthesia syndrome [Not Recovered/Not Resolved]
  - Ejection fraction decreased [Unknown]
  - Off label use [Unknown]
  - Underdose [Unknown]
  - Overdose [Unknown]

NARRATIVE: CASE EVENT DATE: 20191213
